FAERS Safety Report 20510461 (Version 1)
Quarter: 2022Q1

REPORT INFORMATION
  Report Type: Spontaneous
  Country: US (occurrence: US)
  Receive Date: 20220224
  Receipt Date: 20220224
  Transmission Date: 20220423
  Serious: No
  Sender: FDA-Public Use
  Company Number: US-ORGANON-O2202USA001533

PATIENT
  Age: 83 Year
  Sex: Male

DRUGS (14)
  1. ZOCOR [Interacting]
     Active Substance: SIMVASTATIN
     Dosage: UNK
     Route: 048
  2. ALCOHOL [Interacting]
     Active Substance: ALCOHOL
     Dosage: UNK
  3. LISINOPRIL [Interacting]
     Active Substance: LISINOPRIL
     Dosage: UNK
  4. CARVEDILOL [Interacting]
     Active Substance: CARVEDILOL
     Dosage: UNK
  5. CLOPIDOGREL [Interacting]
     Active Substance: CLOPIDOGREL BISULFATE
     Dosage: UNK
  6. ASPIRIN [Interacting]
     Active Substance: ASPIRIN
     Dosage: UNK
  7. LEVOTHYROXINE [Interacting]
     Active Substance: LEVOTHYROXINE
     Dosage: UNK
  8. TAMSULOSIN [Interacting]
     Active Substance: TAMSULOSIN
     Dosage: UNK
  9. MIRABEGRON [Interacting]
     Active Substance: MIRABEGRON
     Dosage: UNK
  10. DIAZEPAM [Interacting]
     Active Substance: DIAZEPAM
     Indication: Sleep disorder
     Dosage: 5 MILLIGRAM AT NIGHT
  11. APIXABAN [Interacting]
     Active Substance: APIXABAN
     Dosage: UNK
  12. METFORMIN [Interacting]
     Active Substance: METFORMIN HYDROCHLORIDE
     Dosage: UNK
  13. INSULIN GLARGINE [Interacting]
     Active Substance: INSULIN GLARGINE
     Dosage: UNK
  14. OMEPRAZOLE [Interacting]
     Active Substance: OMEPRAZOLE
     Dosage: UNK

REACTIONS (1)
  - Alcohol interaction [Unknown]
